FAERS Safety Report 18744026 (Version 1)
Quarter: 2021Q1

REPORT INFORMATION
  Report Type: Spontaneous
  Country: CA (occurrence: CA)
  Receive Date: 20210115
  Receipt Date: 20210115
  Transmission Date: 20210419
  Serious: Yes (Death, Hospitalization)
  Sender: FDA-Public Use
  Company Number: CA-JNJFOC-20210108242

PATIENT
  Age: 64 Year
  Sex: Female

DRUGS (1)
  1. PARACETAMOL [Suspect]
     Active Substance: ACETAMINOPHEN
     Indication: PRODUCT USED FOR UNKNOWN INDICATION
     Dosage: VOLUNTARY INGESTION OF APPROX.150 TABLETS (75G) OF ACETAMINOPHEN
     Route: 048

REACTIONS (8)
  - Intentional product misuse [Fatal]
  - Encephalopathy [Fatal]
  - Hypernatraemia [Fatal]
  - Hypercalcaemia [Fatal]
  - Oliguria [Fatal]
  - Intentional overdose [Fatal]
  - Acute hepatic failure [Fatal]
  - Haemodynamic instability [Fatal]
